FAERS Safety Report 24740458 (Version 1)
Quarter: 2024Q4

REPORT INFORMATION
  Report Type: Spontaneous
  Country: US (occurrence: US)
  Receive Date: 20241216
  Receipt Date: 20241216
  Transmission Date: 20250115
  Serious: No
  Sender: ENDO
  Company Number: ENDB24-00942

PATIENT
  Sex: Male

DRUGS (2)
  1. XIAFLEX [Suspect]
     Active Substance: COLLAGENASE CLOSTRIDIUM HISTOLYTICUM
     Indication: Scar
     Dosage: UNK UNKNOWN, UNKNOWN
     Route: 051
     Dates: start: 20240214
  2. XIAFLEX [Suspect]
     Active Substance: COLLAGENASE CLOSTRIDIUM HISTOLYTICUM
     Dosage: UNK UNKNOWN, UNKNOWN (ANOTHER INJECTION)
     Route: 051
     Dates: start: 20240216

REACTIONS (6)
  - Blood testosterone decreased [Unknown]
  - Testicular atrophy [Recovered/Resolved]
  - Rash [Unknown]
  - Skin irritation [Unknown]
  - Dysuria [Unknown]
  - Sexual dysfunction [Not Recovered/Not Resolved]

NARRATIVE: CASE EVENT DATE: 20240101
